FAERS Safety Report 24172322 (Version 1)
Quarter: 2024Q3

REPORT INFORMATION
  Report Type: Spontaneous
  Country: JP (occurrence: JP)
  Receive Date: 20240805
  Receipt Date: 20240805
  Transmission Date: 20241017
  Serious: Yes (Other)
  Sender: MERCK
  Company Number: JP-MERCK-1001USA00914

PATIENT
  Age: 58 Year
  Sex: Male

DRUGS (10)
  1. EMEND [Interacting]
     Active Substance: APREPITANT
     Indication: Prophylaxis of nausea and vomiting
     Dosage: 125 MG, QD
     Route: 048
     Dates: start: 20100106, end: 20100106
  2. BRIPLATIN [Concomitant]
     Active Substance: CISPLATIN
     Dosage: 135 MG
     Route: 041
     Dates: start: 20100106, end: 20100106
  3. IRINOTECAN [Concomitant]
     Active Substance: IRINOTECAN
     Dosage: 100 MG
     Route: 041
     Dates: start: 20100106, end: 20100106
  4. REBAMIPIDE [Concomitant]
     Active Substance: REBAMIPIDE
     Dosage: 100 MG, Q8H
     Route: 048
  5. DECADRON [Concomitant]
     Active Substance: DEXAMETHASONE
     Dosage: 2 MG, Q12H
     Route: 065
     Dates: start: 20100106, end: 20100106
  6. RAMOSETRON HYDROCHLORIDE [Concomitant]
     Active Substance: RAMOSETRON HYDROCHLORIDE
     Dosage: 0.1 MG, EVERYDAY
     Route: 048
     Dates: start: 20100106, end: 20100106
  7. VALPROATE SODIUM [Concomitant]
     Active Substance: VALPROATE SODIUM
     Indication: Epilepsy
     Dosage: 400 MG, Q12H
     Route: 048
  8. AMPICILLIN SODIUM\SULBACTAM SODIUM [Concomitant]
     Active Substance: AMPICILLIN SODIUM\SULBACTAM SODIUM
     Dosage: 1.5 G
     Route: 041
     Dates: start: 20100106, end: 20100106
  9. RAMELTEON [Concomitant]
     Active Substance: RAMELTEON
     Dosage: UNK
     Route: 065
  10. CEFPODOXIME PROXETIL [Concomitant]
     Active Substance: CEFPODOXIME PROXETIL
     Dosage: UNK
     Route: 065

REACTIONS (7)
  - Seizure [Recovered/Resolved]
  - Blood pressure increased [Unknown]
  - Increased upper airway secretion [Unknown]
  - Somnolence [Unknown]
  - Tonic convulsion [Unknown]
  - Urinary incontinence [Unknown]
  - Drug interaction [Unknown]

NARRATIVE: CASE EVENT DATE: 20100106
